FAERS Safety Report 16010866 (Version 2)
Quarter: 2019Q1

REPORT INFORMATION
  Report Type: Spontaneous
  Country: ES (occurrence: ES)
  Receive Date: 20190227
  Receipt Date: 20190314
  Transmission Date: 20190418
  Serious: Yes (Disabling, Other)
  Sender: FDA-Public Use
  Company Number: ES-AUROBINDO-AUR-APL-2019-009068

PATIENT

DRUGS (4)
  1. ADIRO [Concomitant]
     Active Substance: ASPIRIN
     Indication: PRODUCT USED FOR UNKNOWN INDICATION
     Dosage: 300 MILLIGRAM, DAILY, 1 EVERY 24 HOURS
     Route: 048
     Dates: start: 20030527, end: 201804
  2. IMBRUVICA [Suspect]
     Active Substance: IBRUTINIB
     Indication: CHRONIC LYMPHOCYTIC LEUKAEMIA
     Dosage: 420 MILLIGRAM, DAILY, 3 CAPSULES (420MG) EVERY 24 HOURS. (0-0-3-0). 3 COMPR. OF 140 MG TOGETHER
     Route: 048
     Dates: start: 20180413, end: 20190128
  3. ENTECAVIR 0.5MG [Suspect]
     Active Substance: ENTECAVIR
     Indication: HEPATITIS B
     Dosage: 0.5 MILLIGRAM, DAILY, 0-1-0
     Route: 048
     Dates: start: 201101
  4. CARDYL [Suspect]
     Active Substance: ATORVASTATIN CALCIUM
     Indication: DYSLIPIDAEMIA
     Dosage: 10 MILLIGRAM, DAILY, 28 TABLETS
     Route: 048
     Dates: start: 20031112, end: 20181106

REACTIONS (1)
  - Rhabdomyolysis [Not Recovered/Not Resolved]

NARRATIVE: CASE EVENT DATE: 201810
